FAERS Safety Report 5134520-1 (Version None)
Quarter: 2006Q4

REPORT INFORMATION
  Report Type: 
  Country: None (occurrence: None)
  Receive Date: 20061019
  Receipt Date: 20061006
  Transmission Date: 20070319
  Serious: No
  Sender: FDA-Public Use
  Company Number: US200610001446

PATIENT
  Age: 50 Year
  Sex: Male

DRUGS (1)
  1. CIALIS [Suspect]
     Indication: ERECTILE DYSFUNCTION
     Dosage: 20 MG
     Dates: start: 20050201

REACTIONS (1)
  - VISION BLURRED [None]
